FAERS Safety Report 5780178-8 (Version None)
Quarter: 2008Q2

REPORT INFORMATION
  Report Type: 
  Country: None (occurrence: None)
  Receive Date: 20080620
  Receipt Date: 20080611
  Transmission Date: 20081010
  Serious: Yes (Hospitalization)
  Sender: FDA-Public Use
  Company Number: US-JNJFOC-20080603442

PATIENT
  Sex: Female
  Weight: 74.84 kg

DRUGS (11)
  1. DURAGESIC-100 [Suspect]
     Route: 062
  2. DURAGESIC-100 [Suspect]
     Indication: PAIN
     Route: 062
  3. FENTANYL-100 [Suspect]
     Indication: PAIN
     Route: 062
  4. DILAUDID [Suspect]
     Indication: PAIN
     Route: 030
  5. BENADRYL [Suspect]
     Indication: DRUG USE FOR UNKNOWN INDICATION
     Route: 048
  6. PHENERGAN HCL [Suspect]
     Indication: VOMITING
     Route: 048
  7. PHENERGAN HCL [Suspect]
     Indication: NAUSEA
     Route: 048
  8. ZOFRAN [Concomitant]
     Indication: VOMITING
     Route: 048
  9. ZOFRAN [Concomitant]
     Indication: NAUSEA
     Route: 048
  10. MIRALAX [Concomitant]
     Indication: CONSTIPATION
     Route: 048
  11. RITALIN [Concomitant]
     Indication: ATTENTION DEFICIT/HYPERACTIVITY DISORDER
     Route: 048

REACTIONS (9)
  - APPLICATION SITE ERYTHEMA [None]
  - APPLICATION SITE EXCORIATION [None]
  - APPLICATION SITE IRRITATION [None]
  - BREAKTHROUGH PAIN [None]
  - DRUG ADMINISTERED AT INAPPROPRIATE SITE [None]
  - HYPERSOMNIA [None]
  - LYME DISEASE [None]
  - NAUSEA [None]
  - POLYCYSTIC OVARIES [None]
